FAERS Safety Report 20379607 (Version 2)
Quarter: 2022Q1

REPORT INFORMATION
  Report Type: Report from Study
  Country: CA (occurrence: CA)
  Receive Date: 20220126
  Receipt Date: 20220131
  Transmission Date: 20220423
  Serious: Yes (Other)
  Sender: FDA-Public Use
  Company Number: CA-JNJFOC-20220141502

PATIENT
  Age: 17 Year
  Sex: Male

DRUGS (1)
  1. REMICADE [Suspect]
     Active Substance: INFLIXIMAB
     Indication: Crohn^s disease
     Dosage: ON 25-JAN-2022, THE PATIENT RECEIVED 19TH INFLIXIMAB INFUSION OF DOSE 900 MG AND PARTIAL HARVEY-BRAD
     Route: 042
     Dates: start: 20190424

REACTIONS (2)
  - Crohn^s disease [Not Recovered/Not Resolved]
  - Product dose omission issue [Unknown]

NARRATIVE: CASE EVENT DATE: 20210801
